FAERS Safety Report 5427316-4 (Version None)
Quarter: 2007Q3

REPORT INFORMATION
  Report Type: 
  Country: None (occurrence: None)
  Receive Date: 20070823
  Receipt Date: 20070629
  Transmission Date: 20080115
  Serious: Yes (Hospitalization)
  Sender: FDA-Public Use
  Company Number: 6035560

PATIENT
  Age: 81 Year
  Sex: Male

DRUGS (1)
  1. SERTRALINE [Suspect]
     Indication: DRUG USE FOR UNKNOWN INDICATION
     Dosage: (50 MG) ORAL
     Route: 048
     Dates: start: 20070608, end: 20070620

REACTIONS (1)
  - HEPATITIS [None]
